FAERS Safety Report 5674292-5 (Version None)
Quarter: 2008Q1

REPORT INFORMATION
  Report Type: 
  Country: None (occurrence: None)
  Receive Date: 20080320
  Receipt Date: 20080310
  Transmission Date: 20080703
  Serious: Yes (Other)
  Sender: FDA-Public Use
  Company Number: FR-BAYER-200815045GPV

PATIENT
  Sex: Female

DRUGS (1)
  1. IZILOX 400 [Suspect]
     Indication: DRUG USE FOR UNKNOWN INDICATION
     Route: 065
     Dates: start: 20050211, end: 20050215

REACTIONS (6)
  - ARTHRALGIA [None]
  - EMOTIONAL DISTRESS [None]
  - FATIGUE [None]
  - MYALGIA [None]
  - SCAR [None]
  - TEMPERATURE INTOLERANCE [None]
